FAERS Safety Report 7079878-1 (Version None)
Quarter: 2010Q4

REPORT INFORMATION
  Report Type: 
  Country: None (occurrence: None)
  Receive Date: 20101102
  Receipt Date: 20101020
  Transmission Date: 20110411
  Serious: Yes (Death, Hospitalization)
  Sender: FDA-Public Use
  Company Number: JP-ELI_LILLY_AND_COMPANY-US_000338020

PATIENT
  Sex: Male
  Weight: 59 kg

DRUGS (15)
  1. GEMZAR [Suspect]
     Indication: LUNG NEOPLASM MALIGNANT
     Dosage: 1288 MG, OTHER
     Route: 042
     Dates: start: 20000202, end: 20000301
  2. CAMPTOSAR [Concomitant]
     Dosage: 129 MG, UNKNOWN
     Route: 042
     Dates: start: 20000202, end: 20000301
  3. MS CONTIN [Concomitant]
     Indication: PAIN
     Dosage: 200 MG, DAILY (1/D)
     Route: 048
     Dates: start: 20000202, end: 20000310
  4. MORPHINE HYDROCHLORIDE [Concomitant]
     Indication: PAIN
     Dosage: 20 MG, 3/D
     Route: 054
     Dates: start: 20000202, end: 20000310
  5. MAGNESIUM OXIDE [Concomitant]
     Indication: CONSTIPATION
     Dosage: 3 G, DAILY (1/D)
     Route: 048
     Dates: start: 20000202, end: 20000310
  6. PRIMPERAN [Concomitant]
     Indication: NAUSEA
     Dosage: 3 UNK, DAILY (1/D)
     Route: 048
     Dates: start: 20000202, end: 20000310
  7. LENDORMIN [Concomitant]
     Indication: INSOMNIA
     Dosage: 1 UNK, DAILY (1/D)
     Route: 048
     Dates: start: 20000202, end: 20000210
  8. DOGMATYL [Concomitant]
     Indication: DECREASED APPETITE
     Dosage: 150 MG, DAILY (1/D)
     Route: 048
     Dates: start: 20000224, end: 20000310
  9. KYTRIL [Concomitant]
     Indication: NAUSEA
     Dosage: 3 G, DAILY (1/D)
     Route: 042
     Dates: start: 20000202, end: 20000301
  10. ATARAX [Concomitant]
     Indication: PAIN
     Dosage: UNK, UNKNOWN
     Route: 030
     Dates: start: 20000202, end: 20000310
  11. VOLTAREN [Concomitant]
     Indication: PYREXIA
     Dosage: 25 MG, DAILY (1/D)
     Route: 054
     Dates: start: 20000302, end: 20000302
  12. MOMETASONE FUROATE [Concomitant]
     Dosage: UNK, UNKNOWN
     Route: 061
     Dates: start: 20000203
  13. MILTAX [Concomitant]
     Dosage: UNK, UNKNOWN
     Dates: start: 20000210, end: 20000210
  14. ISODINE [Concomitant]
     Dosage: UNK, UNKNOWN
     Dates: start: 20000214, end: 20000306
  15. FUNGIZONE [Concomitant]
     Dosage: UNK, UNKNOWN
     Dates: start: 20000214, end: 20000306

REACTIONS (4)
  - BLOOD ALKALINE PHOSPHATASE INCREASED [None]
  - PNEUMONIA [None]
  - PULMONARY ALVEOLAR HAEMORRHAGE [None]
  - RESPIRATORY FAILURE [None]
